FAERS Safety Report 4836047-0 (Version None)
Quarter: 2005Q4

REPORT INFORMATION
  Report Type: 
  Country: None (occurrence: None)
  Receive Date: 20051123
  Receipt Date: 20051117
  Transmission Date: 20060501
  Serious: Yes (Death, Life-Threatening, Hospitalization, Other)
  Sender: FDA-Public Use
  Company Number: US-MERCK-0511USA03173

PATIENT
  Age: 37 Year
  Sex: Female

DRUGS (1)
  1. ELSPAR [Suspect]
     Indication: ACUTE LYMPHOCYTIC LEUKAEMIA
     Route: 042
     Dates: start: 20051026, end: 20051116

REACTIONS (6)
  - CONVULSION [None]
  - FEELING ABNORMAL [None]
  - HYPERSENSITIVITY [None]
  - PRURITUS [None]
  - SUDDEN DEATH [None]
  - VOMITING [None]
